FAERS Safety Report 20247131 (Version 1)
Quarter: 2021Q4

REPORT INFORMATION
  Report Type: Report from Study
  Country: DE (occurrence: DE)
  Receive Date: 20211229
  Receipt Date: 20211229
  Transmission Date: 20220303
  Serious: Yes (Death, Hospitalization)
  Sender: FDA-Public Use
  Company Number: DE-BAYER-2021A266210

PATIENT
  Age: 78 Year
  Sex: Male

DRUGS (1)
  1. VENTAVIS [Suspect]
     Active Substance: ILOPROST
     Indication: Pulmonary arterial hypertension
     Dosage: 6ID
     Route: 055
     Dates: start: 20200608

REACTIONS (2)
  - Death [Fatal]
  - COVID-19 [Unknown]

NARRATIVE: CASE EVENT DATE: 20211210
